FAERS Safety Report 20258683 (Version 1)
Quarter: 2021Q4

REPORT INFORMATION
  Report Type: Spontaneous
  Country: US (occurrence: None)
  Receive Date: 20211230
  Receipt Date: 20211230
  Transmission Date: 20220304
  Serious: Yes (Other)
  Sender: FDA-Public Use
  Company Number: None

PATIENT
  Age: 4 Year
  Sex: Female
  Weight: 17.7 kg

DRUGS (2)
  1. BAMLANIVIMAB [Suspect]
     Active Substance: BAMLANIVIMAB
     Indication: COVID-19
     Dosage: OTHER FREQUENCY : ONCE;?
     Route: 042
     Dates: start: 20211229, end: 20211229
  2. ETESEVIMAB [Suspect]
     Active Substance: ETESEVIMAB
     Indication: COVID-19 treatment
     Dosage: OTHER FREQUENCY : ONCE;?
     Route: 042
     Dates: start: 20211229, end: 20211229

REACTIONS (11)
  - Infusion related reaction [None]
  - Discomfort [None]
  - Tongue thrust [None]
  - Retching [None]
  - Vomiting [None]
  - Oxygen saturation decreased [None]
  - Cyanosis [None]
  - Stridor [None]
  - Use of accessory respiratory muscles [None]
  - Dyspnoea [None]
  - Peripheral coldness [None]

NARRATIVE: CASE EVENT DATE: 20211229
